FAERS Safety Report 23407018 (Version 1)
Quarter: 2024Q1

REPORT INFORMATION
  Report Type: Spontaneous
  Country: None (occurrence: FR)
  Receive Date: 20240116
  Receipt Date: 20240116
  Transmission Date: 20240410
  Serious: Yes (Hospitalization)
  Sender: FDA-Public Use
  Company Number: FR-B.Braun Medical Inc.-2151335

PATIENT
  Age: 56 Year
  Sex: Male
  Weight: 86.1 kg

DRUGS (4)
  1. HEPARIN SODIUM IN DEXTROSE [Suspect]
     Active Substance: HEPARIN SODIUM
     Indication: Thrombosis prophylaxis
     Dates: start: 20231128
  2. VERAPAMIL HYDROCHLORIDE [Suspect]
     Active Substance: VERAPAMIL HYDROCHLORIDE
  3. ISOSORBIDE [Suspect]
     Active Substance: ISOSORBIDE
  4. VISIPAQUE [Suspect]
     Active Substance: IODIXANOL

REACTIONS (1)
  - Acute generalised exanthematous pustulosis [None]
